FAERS Safety Report 5128048-2 (Version None)
Quarter: 2006Q4

REPORT INFORMATION
  Report Type: 
  Country: None (occurrence: None)
  Receive Date: 20061010
  Receipt Date: 20060927
  Transmission Date: 20070319
  Serious: Yes (Other)
  Sender: FDA-Public Use
  Company Number: 2006117929

PATIENT
  Sex: Male

DRUGS (1)
  1. LYRICA [Suspect]
     Indication: CENTRAL PAIN SYNDROME
     Dosage: 450 MG (2 IN 1 D), ORAL
     Route: 048
     Dates: start: 20060920

REACTIONS (3)
  - INFECTION [None]
  - MENINGISM [None]
  - RENAL FAILURE [None]
